FAERS Safety Report 5099763-4 (Version None)
Quarter: 2006Q3

REPORT INFORMATION
  Report Type: 
  Country: None (occurrence: None)
  Receive Date: 20060908
  Receipt Date: 20060525
  Transmission Date: 20061208
  Serious: Yes (Other)
  Sender: FDA-Public Use
  Company Number: 2006UW10282

PATIENT
  Age: 36 Year
  Sex: Male

DRUGS (4)
  1. SEROQUEL [Suspect]
     Indication: AGGRESSION
     Dosage: 450 MG QD AT NOON, 200 MG QHS
     Route: 048
  2. SEROQUEL [Suspect]
     Indication: ANXIETY
     Dosage: 450 MG QD AT NOON, 200 MG QHS
     Route: 048
  3. DEPAKOTE [Suspect]
  4. TRILEPTAL [Suspect]

REACTIONS (1)
  - LOSS OF CONSCIOUSNESS [None]
